FAERS Safety Report 5713589-7 (Version None)
Quarter: 2008Q2

REPORT INFORMATION
  Report Type: 
  Country: None (occurrence: None)
  Receive Date: 20080422
  Receipt Date: 20080414
  Transmission Date: 20081010
  Serious: Yes (Hospitalization)
  Sender: FDA-Public Use
  Company Number: PL-ABBOTT-08P-129-0440501-00

PATIENT
  Age: 79 Year
  Sex: Female
  Weight: 75 kg

DRUGS (5)
  1. TARKA [Suspect]
     Indication: HYPERTENSION
     Dosage: 180MG/2MG DAILY, ORAL
     Dates: start: 20070305, end: 20071106
  2. STATINS [Concomitant]
     Indication: DRUG USE FOR UNKNOWN INDICATION
  3. ACENOCOUMAROL [Concomitant]
     Indication: DRUG USE FOR UNKNOWN INDICATION
  4. PANCREATIN TRIPLE STRENGTH CAP [Concomitant]
     Indication: DRUG USE FOR UNKNOWN INDICATION
  5. SILYBUM MARIANUM EXTRACT [Concomitant]
     Indication: DRUG USE FOR UNKNOWN INDICATION

REACTIONS (1)
  - ATRIAL FIBRILLATION [None]
